FAERS Safety Report 5537496-8 (Version None)
Quarter: 2007Q4

REPORT INFORMATION
  Report Type: 
  Country: None (occurrence: None)
  Receive Date: 20071207
  Receipt Date: 20071129
  Transmission Date: 20080405
  Serious: Yes (Hospitalization, Other)
  Sender: FDA-Public Use
  Company Number: US-ELI_LILLY_AND_COMPANY-US200711006744

PATIENT
  Sex: Male

DRUGS (5)
  1. HUMULIN 70/30 [Suspect]
  2. HUMULIN R [Suspect]
  3. ILETIN [Suspect]
  4. PROTAMINE ZINC + ILETIN I (BEEF-PORK) [Suspect]
  5. LANOLIN [Concomitant]

REACTIONS (8)
  - BLOOD GLUCOSE DECREASED [None]
  - BLOOD GLUCOSE INCREASED [None]
  - DRUG INEFFECTIVE [None]
  - EYE OPERATION [None]
  - HOSPITALISATION [None]
  - OEDEMA PERIPHERAL [None]
  - SPINAL OPERATION [None]
  - SURGERY [None]
